FAERS Safety Report 24765000 (Version 1)
Quarter: 2024Q4

REPORT INFORMATION
  Report Type: Spontaneous
  Country: US (occurrence: US)
  Receive Date: 20241223
  Receipt Date: 20241223
  Transmission Date: 20250115
  Serious: Yes (Life-Threatening, Hospitalization)
  Sender: MACLEODS
  Company Number: US-MACLEODS PHARMA-MAC2024050767

PATIENT

DRUGS (1)
  1. OLANZAPINE [Suspect]
     Active Substance: OLANZAPINE
     Indication: Accidental exposure to product by child
     Route: 065

REACTIONS (5)
  - Sinus tachycardia [Recovered/Resolved]
  - Mental status changes [Recovered/Resolved]
  - Respiratory distress [Recovered/Resolved]
  - Accidental exposure to product by child [Unknown]
  - Accidental overdose [Unknown]
